FAERS Safety Report 13932275 (Version 1)
Quarter: 2017Q3

REPORT INFORMATION
  Report Type: Spontaneous
  Country: CH (occurrence: CH)
  Receive Date: 20170904
  Receipt Date: 20170904
  Transmission Date: 20171127
  Serious: Yes (Other)
  Sender: FDA-Public Use
  Company Number: CH-SHIRE-CH201618874

PATIENT
  Sex: Female

DRUGS (1)
  1. ELVANSE [Suspect]
     Active Substance: LISDEXAMFETAMINE DIMESYLATE
     Indication: PRODUCT USED FOR UNKNOWN INDICATION
     Dosage: 100 MG(70 AND 30 MG TOTAL 100 MG)
     Route: 048

REACTIONS (3)
  - Maternal exposure during pregnancy [Unknown]
  - Abortion spontaneous [Unknown]
  - Prescribed overdose [Unknown]
